FAERS Safety Report 4815510-2 (Version None)
Quarter: 2005Q4

REPORT INFORMATION
  Report Type: 
  Country: None (occurrence: None)
  Receive Date: 20051027
  Receipt Date: 20051021
  Transmission Date: 20060501
  Serious: Yes (Other)
  Sender: FDA-Public Use
  Company Number: FRWYE082024OCT05

PATIENT
  Age: 50 Year
  Sex: Female

DRUGS (2)
  1. EFFEXOR XR [Suspect]
     Dosage: 75 MG DAILY; 112.5 MG DAILY THEN 150 MG DAILY
     Route: 048
     Dates: start: 20050401, end: 20050901
  2. EFFEXOR XR [Suspect]
     Dosage: 75 MG DAILY; 112.5 MG DAILY THEN 150 MG DAILY
     Route: 048
     Dates: start: 20050901

REACTIONS (4)
  - AGGRESSION [None]
  - AMNESIA [None]
  - DELIRIUM [None]
  - PHYSICAL ASSAULT [None]
